FAERS Safety Report 4685376-2 (Version None)
Quarter: 2005Q2

REPORT INFORMATION
  Report Type: 
  Country: None (occurrence: None)
  Receive Date: 20050608
  Receipt Date: 20050607
  Transmission Date: 20051028
  Serious: Yes (Death)
  Sender: FDA-Public Use
  Company Number: US-GLAXOSMITHKLINE-A0561477A

PATIENT
  Age: 43 Year
  Sex: Female

DRUGS (1)
  1. PAXIL CR [Suspect]
     Indication: DEPRESSION
     Dosage: 37.5MG UNKNOWN
     Route: 048
     Dates: start: 20021224

REACTIONS (2)
  - CARBON MONOXIDE POISONING [None]
  - COMPLETED SUICIDE [None]
